FAERS Safety Report 14455340 (Version 1)
Quarter: 2018Q1

REPORT INFORMATION
  Report Type: Spontaneous
  Country: US (occurrence: US)
  Receive Date: 20180129
  Receipt Date: 20180129
  Transmission Date: 20180509
  Serious: Yes (Hospitalization)
  Sender: FDA-Public Use
  Company Number: US-BEH-2018087199

PATIENT
  Age: 16 Year
  Sex: Female
  Weight: 26.3 kg

DRUGS (32)
  1. SOLU-CORTEF [Concomitant]
     Active Substance: HYDROCORTISONE SODIUM SUCCINATE
  2. CALMOSEPTINE                       /00156514/ [Concomitant]
  3. ZYRTEC [Concomitant]
     Active Substance: CETIRIZINE HYDROCHLORIDE
  4. STELARA [Concomitant]
     Active Substance: USTEKINUMAB
  5. PREDNISONE. [Concomitant]
     Active Substance: PREDNISONE
  6. HYDROCORTISONE. [Concomitant]
     Active Substance: HYDROCORTISONE
  7. FOSAMAX [Concomitant]
     Active Substance: ALENDRONATE SODIUM
  8. PROCARDIA [Concomitant]
     Active Substance: NIFEDIPINE
  9. IBUPROFEN. [Concomitant]
     Active Substance: IBUPROFEN
  10. ALBUTEROL                          /00139501/ [Concomitant]
     Active Substance: ALBUTEROL
  11. ZANTAC [Concomitant]
     Active Substance: RANITIDINE HYDROCHLORIDE
  12. COENZYME Q10 [Concomitant]
     Active Substance: UBIDECARENONE
  13. OXYGEN. [Concomitant]
     Active Substance: OXYGEN
  14. VITAMIN B COMPLEX [Concomitant]
     Active Substance: CYANOCOBALAMIN\DEXPANTHENOL\NIACINAMIDE\PYRIDOXINE HYDROCHLORIDE\RIBOFLAVIN 5^-PHOSPHATE SODIUM\THIAMINE HYDROCHLORIDE\VITAMIN B COMPLEX
  15. GLUCOPHAGE [Concomitant]
     Active Substance: METFORMIN HYDROCHLORIDE
  16. NORDITROPIN [Concomitant]
     Active Substance: SOMATROPIN
  17. TOBRAMYCIN. [Concomitant]
     Active Substance: TOBRAMYCIN
  18. CREATINE [Concomitant]
     Active Substance: CREATINE
  19. ALPHA LIPOIC ACID [Concomitant]
     Active Substance: .ALPHA.-LIPOIC ACID
  20. CAYSTON [Concomitant]
     Active Substance: AZTREONAM
  21. PRILOSEC [Concomitant]
     Active Substance: OMEPRAZOLE MAGNESIUM
  22. PULMOZYME [Concomitant]
     Active Substance: DORNASE ALFA
  23. HIZENTRA [Suspect]
     Active Substance: HUMAN IMMUNOGLOBULIN G
     Dosage: UNK
     Route: 058
  24. CARNITOR [Concomitant]
     Active Substance: LEVOCARNITINE
  25. CALCITRIOL. [Concomitant]
     Active Substance: CALCITRIOL
  26. HIZENTRA [Suspect]
     Active Substance: HUMAN IMMUNOGLOBULIN G
     Indication: HYPOGAMMAGLOBULINAEMIA
     Dosage: 4 G, QW
     Route: 058
     Dates: start: 20171124
  27. CALCIUM CARBONATE. [Concomitant]
     Active Substance: CALCIUM CARBONATE
  28. FLONASE [Concomitant]
     Active Substance: FLUTICASONE PROPIONATE
  29. PULMICORT TURBUHALER [Concomitant]
     Active Substance: BUDESONIDE
  30. MULTIVITAMIN                       /00097801/ [Concomitant]
     Active Substance: VITAMINS
  31. SWEEN [Concomitant]
  32. UREA C [Concomitant]

REACTIONS (2)
  - Nephrolithiasis [Unknown]
  - Staphylococcal infection [Unknown]
